FAERS Safety Report 4989218-7 (Version None)
Quarter: 2006Q2

REPORT INFORMATION
  Report Type: 
  Country: None (occurrence: None)
  Receive Date: 20060425
  Receipt Date: 20060410
  Transmission Date: 20061013
  Serious: Yes (Other)
  Sender: FDA-Public Use
  Company Number: 2006050009

PATIENT
  Age: 45 Year
  Sex: Male
  Weight: 172.3669 kg

DRUGS (6)
  1. GLIPIZIDE [Suspect]
     Indication: DIABETES MELLITUS NON-INSULIN-DEPENDENT
     Dosage: 5 MG (2.5 MG, 2 IN 1 D)
     Dates: start: 20060401
  2. GLIPIZIDE [Suspect]
     Indication: DIABETES MELLITUS NON-INSULIN-DEPENDENT
     Dosage: 5 MG (2.5 MG, 2 IN 1 D)
     Dates: start: 20060101, end: 20060401
  3. BENICAR [Concomitant]
  4. RHINOCORT AQUA (BUDESONIDE) [Concomitant]
  5. IBUPROFEN [Concomitant]
  6. GLUCOPHAGE [Concomitant]

REACTIONS (4)
  - FEELING HOT [None]
  - NEPHROLITHIASIS [None]
  - RED BLOOD CELLS URINE [None]
  - SINUS DISORDER [None]
